FAERS Safety Report 4433820-8 (Version None)
Quarter: 2004Q3

REPORT INFORMATION
  Report Type: 
  Country: None (occurrence: None)
  Receive Date: 20040825
  Receipt Date: 20040825
  Transmission Date: 20050211
  Serious: No
  Sender: FDA-Public Use
  Company Number: None

PATIENT
  Age: 83 Year
  Sex: Male
  Weight: 63.1 kg

DRUGS (6)
  1. ROFECOXIB [Suspect]
  2. ALENDRONATE SODIUM [Concomitant]
  3. CAPSAICIN [Concomitant]
  4. FAMCICLOVIR [Concomitant]
  5. FLUNCICLOVIR [Concomitant]
  6. FLUNISOLIDE 250 MCG/MENTHOL [Concomitant]

REACTIONS (1)
  - OEDEMA [None]
